FAERS Safety Report 8532272-6 (Version None)
Quarter: 2012Q3

REPORT INFORMATION
  Report Type: 
  Country: None (occurrence: None)
  Receive Date: 20120724
  Receipt Date: 20120717
  Transmission Date: 20120928
  Serious: Yes (Other)
  Sender: FDA-Public Use
  Company Number: PHHY2012JP061939

PATIENT
  Age: 59 Year
  Sex: Male

DRUGS (2)
  1. CYCLOSPORINE [Suspect]
     Route: 048
  2. MYCOPHENOLATE MOFETIL [Concomitant]
     Route: 048

REACTIONS (2)
  - CYTOMEGALOVIRUS INFECTION [None]
  - CALCINOSIS [None]
